FAERS Safety Report 17806721 (Version 1)
Quarter: 2020Q2

REPORT INFORMATION
  Report Type: Spontaneous
  Country: US (occurrence: US)
  Receive Date: 20200519
  Receipt Date: 20200519
  Transmission Date: 20200714
  Serious: Yes (Death, Life-Threatening, Other)
  Sender: FDA-Public Use
  Company Number: None

PATIENT
  Age: 72 Year
  Sex: Female
  Weight: 92.3 kg

DRUGS (22)
  1. ENOXAPARIN [Concomitant]
     Active Substance: ENOXAPARIN
  2. HYDROXYCHLOROQUINE [Concomitant]
     Active Substance: HYDROXYCHLOROQUINE
  3. MORPHINE [Concomitant]
     Active Substance: MORPHINE
  4. BENSONATATE [Concomitant]
  5. EPINEPHRINE. [Concomitant]
     Active Substance: EPINEPHRINE
  6. ACETAMINOPHEN. [Concomitant]
     Active Substance: ACETAMINOPHEN
  7. NORMOSOL-R [Concomitant]
     Active Substance: MAGNESIUM CHLORIDE\POTASSIUM CHLORIDE\SODIUM ACETATE ANHYDROUS\SODIUM CHLORIDE\SODIUM GLUCONATE
  8. FENTANYL. [Concomitant]
     Active Substance: FENTANYL
  9. HEPARIN [Concomitant]
     Active Substance: HEPARIN SODIUM
  10. LORAZEPAM. [Concomitant]
     Active Substance: LORAZEPAM
  11. LACTATED RINGERS SOLUTION [Concomitant]
     Active Substance: CALCIUM CHLORIDE\POTASSIUM CHLORIDE\SODIUM CHLORIDE\SODIUM LACTATE
  12. CISATRACURIUM. [Concomitant]
     Active Substance: CISATRACURIUM
  13. DEXMEDETOMIDINE. [Concomitant]
     Active Substance: DEXMEDETOMIDINE
  14. MELATONIN [Concomitant]
     Active Substance: MELATONIN
  15. METACLOPRAMIDE [Concomitant]
     Active Substance: METOCLOPRAMIDE
  16. METOPROLOL TARTRATE. [Concomitant]
     Active Substance: METOPROLOL TARTRATE
  17. MAGNESIUM SULFATE. [Concomitant]
     Active Substance: MAGNESIUM SULFATE
  18. REMDESIVIR. [Suspect]
     Active Substance: REMDESIVIR
     Indication: COVID-19
     Route: 040
     Dates: start: 20200513, end: 20200516
  19. CEFEPIME [Concomitant]
     Active Substance: CEFEPIME HYDROCHLORIDE
  20. IOPAMIDOL [Concomitant]
     Active Substance: IOPAMIDOL
  21. NOREPINEPHRINE. [Concomitant]
     Active Substance: NOREPINEPHRINE
  22. CHLORHEXIDINE [Concomitant]
     Active Substance: CHLORHEXIDINE

REACTIONS (5)
  - Shock [None]
  - Hypoxia [None]
  - Acute kidney injury [None]
  - Respiratory disorder [None]
  - Fluid overload [None]

NARRATIVE: CASE EVENT DATE: 20200517
